FAERS Safety Report 5509678-2 (Version None)
Quarter: 2007Q4

REPORT INFORMATION
  Report Type: 
  Country: None (occurrence: None)
  Receive Date: 20071107
  Receipt Date: 20071107
  Transmission Date: 20080405
  Serious: No
  Sender: FDA-Public Use
  Company Number: None

PATIENT
  Sex: Male
  Weight: 84.8226 kg

DRUGS (5)
  1. RANITIDINE HCL [Suspect]
     Indication: GASTROOESOPHAGEAL REFLUX DISEASE
     Dosage: 150MG QHS PO
     Route: 048
     Dates: start: 20061017
  2. VENLAFAXINE HCL [Concomitant]
  3. QUETIAPINE FUMARATE [Concomitant]
  4. FLUVASTATIN [Suspect]
  5. DOXAZOSIN MESYLATE [Concomitant]

REACTIONS (4)
  - ABDOMINAL PAIN LOWER [None]
  - CONSTIPATION [None]
  - DIARRHOEA [None]
  - PANCREATITIS [None]
